FAERS Safety Report 25433754 (Version 4)
Quarter: 2025Q3

REPORT INFORMATION
  Report Type: Spontaneous
  Country: EU (occurrence: EU)
  Receive Date: 20250613
  Receipt Date: 20250707
  Transmission Date: 20251021
  Serious: Yes (Hospitalization, Other)
  Sender: MYLAN
  Company Number: EU-BoehringerIngelheim-2025-BI-073009

PATIENT
  Age: 84 Year
  Sex: Male

DRUGS (16)
  1. DABIGATRAN [Suspect]
     Active Substance: DABIGATRAN
     Indication: Atrial fibrillation
     Route: 065
  2. DABIGATRAN [Suspect]
     Active Substance: DABIGATRAN
  3. DABIGATRAN [Suspect]
     Active Substance: DABIGATRAN
  4. DABIGATRAN [Suspect]
     Active Substance: DABIGATRAN
     Route: 065
  5. DABIGATRAN [Suspect]
     Active Substance: DABIGATRAN
     Route: 065
  6. DABIGATRAN [Suspect]
     Active Substance: DABIGATRAN
  7. DABIGATRAN [Suspect]
     Active Substance: DABIGATRAN
  8. DABIGATRAN [Suspect]
     Active Substance: DABIGATRAN
     Route: 065
  9. AZITHROMYCIN DIHYDRATE [Suspect]
     Active Substance: AZITHROMYCIN DIHYDRATE
     Indication: Organising pneumonia
  10. AZITHROMYCIN DIHYDRATE [Suspect]
     Active Substance: AZITHROMYCIN DIHYDRATE
     Route: 065
  11. AZITHROMYCIN DIHYDRATE [Suspect]
     Active Substance: AZITHROMYCIN DIHYDRATE
     Route: 065
  12. AZITHROMYCIN DIHYDRATE [Suspect]
     Active Substance: AZITHROMYCIN DIHYDRATE
  13. AMOXICILLIN\CLAVULANIC ACID [Concomitant]
     Active Substance: AMOXICILLIN\CLAVULANIC ACID
     Indication: Organising pneumonia
  14. AMOXICILLIN\CLAVULANIC ACID [Concomitant]
     Active Substance: AMOXICILLIN\CLAVULANIC ACID
     Route: 065
  15. AMOXICILLIN\CLAVULANIC ACID [Concomitant]
     Active Substance: AMOXICILLIN\CLAVULANIC ACID
     Route: 065
  16. AMOXICILLIN\CLAVULANIC ACID [Concomitant]
     Active Substance: AMOXICILLIN\CLAVULANIC ACID

REACTIONS (3)
  - Organising pneumonia [Recovering/Resolving]
  - Condition aggravated [Recovering/Resolving]
  - Drug ineffective [Unknown]
